FAERS Safety Report 4493748-4 (Version None)
Quarter: 2004Q4

REPORT INFORMATION
  Report Type: 
  Country: None (occurrence: None)
  Receive Date: 20041103
  Receipt Date: 20041103
  Transmission Date: 20050328
  Serious: Yes (Hospitalization)
  Sender: FDA-Public Use
  Company Number: None

PATIENT
  Sex: Male
  Weight: 73.0291 kg

DRUGS (2)
  1. ACTIMMUNE [Suspect]
     Indication: PULMONARY FIBROSIS
     Dosage: 200 MG TIW SQ
     Route: 058
     Dates: start: 20040405, end: 20040624
  2. PREDNISONE [Concomitant]

REACTIONS (3)
  - CHILLS [None]
  - FATIGUE [None]
  - HEADACHE [None]
